FAERS Safety Report 9884507 (Version 1)
Quarter: 2014Q1

REPORT INFORMATION
  Report Type: Spontaneous
  Country: IT (occurrence: IT)
  Receive Date: 20140210
  Receipt Date: 20140210
  Transmission Date: 20141002
  Serious: Yes (Life-Threatening, Hospitalization)
  Sender: FDA-Public Use
  Company Number: IT-ASTRAZENECA-2014SE09272

PATIENT
  Age: 31854 Day
  Sex: Female

DRUGS (3)
  1. ESOPRAL [Suspect]
     Indication: SUICIDE ATTEMPT
     Route: 048
     Dates: start: 20140127, end: 20140127
  2. TRIATEC [Suspect]
     Indication: SUICIDE ATTEMPT
     Route: 048
     Dates: start: 20140127, end: 20140127
  3. NORMIX [Suspect]
     Indication: SUICIDE ATTEMPT
     Route: 048
     Dates: start: 20140127, end: 20140127

REACTIONS (1)
  - Suicide attempt [Recovering/Resolving]
